FAERS Safety Report 10533307 (Version 3)
Quarter: 2015Q3

REPORT INFORMATION
  Report Type: Spontaneous
  Country: FR (occurrence: FR)
  Receive Date: 20141020
  Receipt Date: 20150904
  Transmission Date: 20151125
  Serious: Yes (Hospitalization, Other)
  Sender: FDA-Public Use
  Company Number: FR-SEPTODONT-201402259

PATIENT
  Age: 76 Year
  Sex: Female
  Weight: 60 kg

DRUGS (7)
  1. ATENOLOL. [Concomitant]
     Active Substance: ATENOLOL
  2. LERCAN [Concomitant]
     Active Substance: LERCANIDIPINE
  3. SCANDICAINE 20 MG/ML ADR?NALIN?E AU 1/100.000 [Suspect]
     Active Substance: EPINEPHRINE\MEPIVACAINE HYDROCHLORIDE
     Indication: LOCAL ANAESTHESIA
     Dosage: ABOUT 1 CARTRIDGE
     Route: 004
     Dates: start: 20140711, end: 20140711
  4. LAROXYL [Concomitant]
     Active Substance: AMITRIPTYLINE
  5. DAFALGAN COD?IN? [Concomitant]
  6. STRESAM, G?LULE [Concomitant]
  7. LEVOTHYROXINE. [Concomitant]
     Active Substance: LEVOTHYROXINE

REACTIONS (3)
  - Confusional state [Recovered/Resolved]
  - Amnestic disorder [Recovered/Resolved]
  - Hypertension [Recovered/Resolved]

NARRATIVE: CASE EVENT DATE: 20140711
